FAERS Safety Report 24532225 (Version 2)
Quarter: 2025Q1

REPORT INFORMATION
  Report Type: Spontaneous
  Country: CA (occurrence: CA)
  Receive Date: 20241022
  Receipt Date: 20250116
  Transmission Date: 20250409
  Serious: Yes (Other)
  Sender: SPECGX
  Company Number: CA-SPECGX-T202402076

PATIENT
  Age: 74 Year
  Sex: Male

DRUGS (1)
  1. METHADOSE [Suspect]
     Active Substance: METHADONE HYDROCHLORIDE
     Indication: Product used for unknown indication
     Route: 065

REACTIONS (4)
  - Fall [Unknown]
  - Somnolence [Unknown]
  - Sedation [Unknown]
  - Confusional state [Unknown]

NARRATIVE: CASE EVENT DATE: 20240605
